FAERS Safety Report 8470354-8 (Version None)
Quarter: 2012Q2

REPORT INFORMATION
  Report Type: 
  Country: None (occurrence: None)
  Receive Date: 20120627
  Receipt Date: 20120626
  Transmission Date: 20120825
  Serious: No
  Sender: FDA-Public Use
  Company Number: US-PFIZER INC-2012154198

PATIENT
  Sex: Female
  Weight: 61.224 kg

DRUGS (7)
  1. HYDROCODONE [Concomitant]
     Indication: EXOSTOSIS
  2. NEXIUM [Concomitant]
     Indication: GASTROOESOPHAGEAL REFLUX DISEASE
     Dosage: 40 MG, DAILY
  3. CHANTIX [Suspect]
     Indication: SMOKING CESSATION THERAPY
     Dosage: 0.5 MG, DAILY
     Route: 048
  4. CHANTIX [Suspect]
     Dosage: 1 MG, UNK
     Route: 048
  5. HYDROCODONE [Concomitant]
     Indication: INTERVERTEBRAL DISC DEGENERATION
     Dosage: 10/500MG, 3 TO 4 TIMES A DAY
  6. AMITRIPTYLINE [Concomitant]
     Indication: DEPRESSION
     Dosage: 50 MG, 2X/DAY
  7. DICLOFENAC [Concomitant]
     Indication: MUSCLE RELAXANT THERAPY
     Dosage: 20 MG, 4X/DAY

REACTIONS (1)
  - ABNORMAL DREAMS [None]
